FAERS Safety Report 6447423-7 (Version None)
Quarter: 2009Q4

REPORT INFORMATION
  Report Type: 
  Country: None (occurrence: None)
  Receive Date: 20091119
  Receipt Date: 20091109
  Transmission Date: 20100525
  Serious: Yes (Death, Hospitalization)
  Sender: FDA-Public Use
  Company Number: TW-BAXTER-2009BH016876

PATIENT
  Sex: Male

DRUGS (4)
  1. DIANEAL [Suspect]
     Indication: PERITONEAL DIALYSIS
     Route: 033
     Dates: start: 20090501
  2. DIANEAL [Suspect]
     Route: 033
     Dates: start: 20090501
  3. DIANEAL [Suspect]
     Indication: PERITONEAL DIALYSIS
     Route: 033
     Dates: start: 20090501
  4. DIANEAL [Suspect]
     Route: 033
     Dates: start: 20090501

REACTIONS (1)
  - GASTROINTESTINAL HAEMORRHAGE [None]
